FAERS Safety Report 4968138-8 (Version None)
Quarter: 2006Q2

REPORT INFORMATION
  Report Type: 
  Country: None (occurrence: None)
  Receive Date: 20060410
  Receipt Date: 20060109
  Transmission Date: 20061013
  Serious: Yes (Hospitalization)
  Sender: FDA-Public Use
  Company Number: PHRM2006FR00484

PATIENT
  Age: 76 Year
  Sex: Female
  Weight: 50 kg

DRUGS (7)
  1. OROCAL D3 [Suspect]
     Dosage: 2 DF, QD
     Route: 048
     Dates: start: 20040615
  2. TAREG [Suspect]
     Dosage: 80 MG/DAY
     Route: 048
     Dates: start: 20020615
  3. CORTANCYL [Suspect]
     Indication: RHEUMATOID ARTHRITIS
     Dosage: 40 MG/DAY
     Route: 048
     Dates: start: 20040615
  4. TAHOR [Suspect]
     Dosage: 10 MG/DAY
     Route: 048
     Dates: start: 20020615
  5. REMICADE [Suspect]
     Indication: RHEUMATOID ARTHRITIS
     Dosage: 147 MG/DAY
     Route: 042
     Dates: start: 20051011, end: 20051011
  6. REMICADE [Suspect]
     Dosage: 150 MG/DAY
     Route: 042
     Dates: start: 20051108, end: 20051108
  7. REMICADE [Suspect]
     Dosage: 150 MG/DAY
     Route: 042
     Dates: start: 20050926, end: 20050926

REACTIONS (13)
  - ANAEMIA [None]
  - AUTOIMMUNE DISORDER [None]
  - C-REACTIVE PROTEIN INCREASED [None]
  - DIABETES MELLITUS [None]
  - HAEMORRHAGE [None]
  - HYPERGLYCAEMIA [None]
  - LEUKOCYTOSIS [None]
  - PARALYSIS [None]
  - PARALYTIC GAIT [None]
  - POLYARTHRITIS [None]
  - POLYNEUROPATHY [None]
  - RADICULAR SYNDROME [None]
  - VIRAL INFECTION [None]
